FAERS Safety Report 14922296 (Version 1)
Quarter: 2018Q2

REPORT INFORMATION
  Report Type: Spontaneous
  Country: DE (occurrence: DE)
  Receive Date: 20180522
  Receipt Date: 20180522
  Transmission Date: 20180711
  Serious: Yes (Hospitalization)
  Sender: FDA-Public Use
  Company Number: DE-CONCORDIA PHARMACEUTICALS INC.-E2B_00011748

PATIENT
  Age: 30 Year
  Sex: Male
  Weight: 65 kg

DRUGS (4)
  1. PREDNISOLONE. [Suspect]
     Active Substance: PREDNISOLONE
     Dosage: 50 MG, 1-0-0, TABLETTEN
     Route: 048
  2. AZATHIOPRIN AL 50 [Suspect]
     Active Substance: AZATHIOPRINE
     Dosage: 50 MG, 0-0-0-1, TABLETTEN
     Route: 048
  3. IDEOS 500MG/400I.E. [Concomitant]
     Dosage: 500|40 MG/I.E., 1-0-1, KAUTABLETTEN
     Route: 048
  4. PREDNISOLONE. [Suspect]
     Active Substance: PREDNISOLONE
     Dosage: 20 MG, 0-0-1, TABLETTEN
     Route: 048

REACTIONS (2)
  - Diarrhoea [Unknown]
  - Nausea [Unknown]
